FAERS Safety Report 8102377-2 (Version None)
Quarter: 2012Q1

REPORT INFORMATION
  Report Type: 
  Country: None (occurrence: None)
  Receive Date: 20120201
  Receipt Date: 20120130
  Transmission Date: 20120608
  Serious: No
  Sender: FDA-Public Use
  Company Number: US-PFIZER INC-2012025765

PATIENT
  Sex: Male
  Weight: 86.168 kg

DRUGS (3)
  1. SUCRALFATE [Concomitant]
     Indication: PEPTIC ULCER
     Dosage: 1 G, THREE OR FOUR TIMES A DAY
     Route: 048
  2. CHANTIX [Suspect]
     Indication: SMOKING CESSATION THERAPY
     Dosage: 0.5 MG, DAILY
     Route: 048
     Dates: start: 20110906
  3. CHANTIX [Suspect]
     Dosage: 1 MG, 2X/DAY
     Route: 048
     Dates: start: 20110101, end: 20111120

REACTIONS (3)
  - INSOMNIA [None]
  - TIC [None]
  - NAUSEA [None]
